FAERS Safety Report 26125414 (Version 1)
Quarter: 2025Q4

REPORT INFORMATION
  Report Type: Spontaneous
  Country: US (occurrence: None)
  Receive Date: 20251204
  Receipt Date: 20251204
  Transmission Date: 20260118
  Serious: Yes (Hospitalization, Other)
  Sender: FDA-CTU
  Company Number: None

PATIENT
  Age: 52 Year
  Sex: Male
  Weight: 77.6 kg

DRUGS (3)
  1. GAMUNEX [Suspect]
     Active Substance: HUMAN IMMUNOGLOBULIN G
     Indication: Hypogammaglobulinaemia
     Dosage: OTHER FREQUENCY : EVERY 28 DAYS;?
     Route: 041
     Dates: start: 20221111
  2. ACETAMINOPHEN [Concomitant]
     Active Substance: ACETAMINOPHEN
  3. DIPHENHYDRAMINE [Concomitant]
     Active Substance: DIPHENHYDRAMINE

REACTIONS (11)
  - Infusion related reaction [None]
  - Urticaria [None]
  - Face oedema [None]
  - Oedema peripheral [None]
  - Lip swelling [None]
  - Hypersensitivity [None]
  - Anaphylactic reaction [None]
  - Obstructive airways disorder [None]
  - Anaphylactic shock [None]
  - Hypertension [None]
  - Erythema [None]

NARRATIVE: CASE EVENT DATE: 20251203
